FAERS Safety Report 11492244 (Version 1)
Quarter: 2015Q3

REPORT INFORMATION
  Report Type: Spontaneous
  Country: US (occurrence: US)
  Receive Date: 20150910
  Receipt Date: 20150910
  Transmission Date: 20151125
  Serious: No
  Sender: FDA-Public Use
  Company Number: US-PFIZER INC-2015293017

PATIENT
  Age: 38 Year
  Sex: Female

DRUGS (1)
  1. NEURONTIN [Suspect]
     Active Substance: GABAPENTIN
     Indication: NERVE INJURY
     Dosage: 75 MG, 3X/DAY
     Dates: end: 2004

REACTIONS (6)
  - Feeling abnormal [Unknown]
  - Drug ineffective [Unknown]
  - Reflexes abnormal [Unknown]
  - Dyskinesia [Unknown]
  - Sensory loss [Unknown]
  - Altered visual depth perception [Unknown]
